FAERS Safety Report 4694581-0 (Version None)
Quarter: 2005Q2

REPORT INFORMATION
  Report Type: 
  Country: None (occurrence: None)
  Receive Date: 20050620
  Receipt Date: 20050525
  Transmission Date: 20051028
  Serious: No
  Sender: FDA-Public Use
  Company Number: US-SANOFI-SYNTHELABO-A03200501580

PATIENT
  Sex: Female
  Weight: 42 kg

DRUGS (4)
  1. ELOXATIN [Suspect]
     Indication: ADENOCARCINOMA
     Route: 042
     Dates: start: 20050503, end: 20050503
  2. LEUCOVORIN [Concomitant]
     Dosage: UNK
     Route: 042
     Dates: start: 20050503
  3. FLUOROURACIL [Concomitant]
     Dosage: UNK
     Route: 042
     Dates: start: 20050503
  4. AVASTIN [Concomitant]
     Dosage: UNK
     Route: 065
     Dates: start: 20050426

REACTIONS (1)
  - BLINDNESS TRANSIENT [None]
